FAERS Safety Report 5364798-0 (Version None)
Quarter: 2007Q2

REPORT INFORMATION
  Report Type: 
  Country: None (occurrence: None)
  Receive Date: 20070530
  Receipt Date: 20070216
  Transmission Date: 20071010
  Serious: No
  Sender: FDA-Public Use
  Company Number: 2006PV011395

PATIENT
  Age: 67 Year
  Sex: Female
  Weight: 83.0083 kg

DRUGS (8)
  1. BYETTA [Suspect]
     Indication: DIABETES MELLITUS NON-INSULIN-DEPENDENT
     Dosage: 5 MCG;BID;SC   5 MCG;BID;SC   5 MCG;QAM;SC  10 MCG;BID;SC
     Route: 058
     Dates: start: 20060401, end: 20060101
  2. BYETTA [Suspect]
     Indication: DIABETES MELLITUS NON-INSULIN-DEPENDENT
     Dosage: 5 MCG;BID;SC   5 MCG;BID;SC   5 MCG;QAM;SC  10 MCG;BID;SC
     Route: 058
     Dates: start: 20060501, end: 20060901
  3. BYETTA [Suspect]
     Indication: DIABETES MELLITUS NON-INSULIN-DEPENDENT
     Dosage: 5 MCG;BID;SC   5 MCG;BID;SC   5 MCG;QAM;SC  10 MCG;BID;SC
     Route: 058
     Dates: start: 20060901
  4. BYETTA [Suspect]
     Indication: DIABETES MELLITUS NON-INSULIN-DEPENDENT
     Dosage: 5 MCG;BID;SC   5 MCG;BID;SC   5 MCG;QAM;SC  10 MCG;BID;SC
     Route: 058
     Dates: start: 20061201
  5. BYETTA [Suspect]
  6. METFORMIN HCL [Concomitant]
  7. ACTOS [Concomitant]
  8. GLUCOPHAGE [Concomitant]

REACTIONS (10)
  - BLOOD GLUCOSE DECREASED [None]
  - FATIGUE [None]
  - FEELING COLD [None]
  - HYPOGLYCAEMIA [None]
  - NERVOUSNESS [None]
  - PHARYNGOLARYNGEAL PAIN [None]
  - RHINORRHOEA [None]
  - SOMNOLENCE [None]
  - VIRAL INFECTION [None]
  - VISION BLURRED [None]
